FAERS Safety Report 8499811-5 (Version None)
Quarter: 2012Q3

REPORT INFORMATION
  Report Type: 
  Country: None (occurrence: None)
  Receive Date: 20120710
  Receipt Date: 20120626
  Transmission Date: 20120928
  Serious: Yes (Other)
  Sender: FDA-Public Use
  Company Number: GB-TEVA-345111ISR

PATIENT
  Age: 16 Year
  Sex: Female
  Weight: 44 kg

DRUGS (2)
  1. ERYTHROMYCIN [Suspect]
     Dates: start: 20120511, end: 20120518
  2. NORDETTE-28 [Concomitant]
     Dates: start: 20120130

REACTIONS (3)
  - NAUSEA [None]
  - VOMITING [None]
  - CHEST PAIN [None]
